FAERS Safety Report 18339344 (Version 1)
Quarter: 2020Q4

REPORT INFORMATION
  Report Type: Spontaneous
  Country: US (occurrence: US)
  Receive Date: 20201002
  Receipt Date: 20201002
  Transmission Date: 20210113
  Serious: Yes (Hospitalization)
  Sender: FDA-Public Use
  Company Number: None

PATIENT
  Age: 89 Year
  Sex: Female
  Weight: 48.15 kg

DRUGS (1)
  1. XARELTO [Suspect]
     Active Substance: RIVAROXABAN
     Indication: DEEP VEIN THROMBOSIS
     Route: 048
     Dates: start: 20200516, end: 20201001

REACTIONS (6)
  - Constipation [None]
  - Pallor [None]
  - Gastrointestinal haemorrhage [None]
  - Asthenia [None]
  - Lethargy [None]
  - Fatigue [None]

NARRATIVE: CASE EVENT DATE: 20201001
